FAERS Safety Report 16219092 (Version 2)
Quarter: 2019Q2

REPORT INFORMATION
  Report Type: Spontaneous
  Country: US (occurrence: US)
  Receive Date: 20190419
  Receipt Date: 20190508
  Transmission Date: 20190711
  Serious: Yes (Other)
  Sender: FDA-Public Use
  Company Number: US-ASTRAZENECA-2019SE11005

PATIENT
  Sex: Female

DRUGS (11)
  1. CALCITRIOL. [Concomitant]
     Active Substance: CALCITRIOL
  2. DIOVAN [Concomitant]
     Active Substance: VALSARTAN
  3. FOLATE [Concomitant]
     Active Substance: FOLATE SODIUM
  4. SIMVASTATIN. [Concomitant]
     Active Substance: SIMVASTATIN
  5. WARFARIN [Concomitant]
     Active Substance: WARFARIN
  6. PEPCID [Concomitant]
     Active Substance: FAMOTIDINE
  7. IRBESARTAN. [Concomitant]
     Active Substance: IRBESARTAN
  8. VITAMIN D NOS [Concomitant]
     Active Substance: VITAMIN D NOS
  9. NEXIUM [Suspect]
     Active Substance: ESOMEPRAZOLE MAGNESIUM
     Route: 048
  10. COREG [Concomitant]
     Active Substance: CARVEDILOL
  11. BIOTIN [Concomitant]
     Active Substance: BIOTIN

REACTIONS (4)
  - Chronic kidney disease [Unknown]
  - Renal injury [Unknown]
  - Renal failure [Unknown]
  - Rebound acid hypersecretion [Unknown]
